FAERS Safety Report 7289365-3 (Version None)
Quarter: 2011Q1

REPORT INFORMATION
  Report Type: 
  Country: None (occurrence: None)
  Receive Date: 20110211
  Receipt Date: 20110208
  Transmission Date: 20110831
  Serious: Yes (Death, Disabling)
  Sender: FDA-Public Use
  Company Number: US-US-EMD SERONO, INC.-7008108

PATIENT
  Sex: Female

DRUGS (2)
  1. REBIF [Suspect]
     Indication: MULTIPLE SCLEROSIS
     Dates: end: 20100317
  2. UNSPECIFIED MEDICATIONS [Concomitant]
     Dates: end: 20100317

REACTIONS (3)
  - MULTIPLE SCLEROSIS [None]
  - ABASIA [None]
  - BLINDNESS [None]
